FAERS Safety Report 13897461 (Version 1)
Quarter: 2017Q3

REPORT INFORMATION
  Report Type: Spontaneous
  Country: US (occurrence: US)
  Receive Date: 20170823
  Receipt Date: 20170823
  Transmission Date: 20171127
  Serious: No
  Sender: FDA-Public Use
  Company Number: US-SA-2016SA195153

PATIENT
  Age: 54 Year
  Sex: Female

DRUGS (1)
  1. MULTAQ [Suspect]
     Active Substance: DRONEDARONE
     Route: 065
     Dates: start: 20161013, end: 20161017

REACTIONS (3)
  - Abdominal pain upper [Unknown]
  - Hepatic pain [Unknown]
  - Chest pain [Unknown]

NARRATIVE: CASE EVENT DATE: 20161016
